FAERS Safety Report 8984775 (Version 3)
Quarter: 2013Q1

REPORT INFORMATION
  Report Type: Spontaneous
  Country: IE (occurrence: IE)
  Receive Date: 20121226
  Receipt Date: 20130327
  Transmission Date: 20140127
  Serious: Yes (Death)
  Sender: FDA-Public Use
  Company Number: PHFR2012IE006617

PATIENT
  Sex: Male

DRUGS (2)
  1. CLOZAPINE [Suspect]
     Dosage: UNK
     Route: 048
  2. CLOZAPINE [Suspect]
     Dosage: UNK UKN, REDUCED DOSE
     Route: 048
     Dates: end: 20120919

REACTIONS (1)
  - Completed suicide [Fatal]
